FAERS Safety Report 25607116 (Version 5)
Quarter: 2025Q4

REPORT INFORMATION
  Report Type: Spontaneous
  Country: US (occurrence: US)
  Receive Date: 20250725
  Receipt Date: 20251029
  Transmission Date: 20260117
  Serious: Yes (Hospitalization)
  Sender: BIOMARIN
  Company Number: US-SA-2025SA204384

PATIENT
  Age: 6 Year
  Sex: Female

DRUGS (2)
  1. LARONIDASE [Suspect]
     Active Substance: LARONIDASE
     Indication: Mucopolysaccharidosis I
     Dosage: 11.6 (UNITS UNSPECIFIED), QW
     Dates: start: 20190417
  2. LARONIDASE [Suspect]
     Active Substance: LARONIDASE
     Dosage: 10.2 MG, QW

REACTIONS (3)
  - Joint dislocation [Unknown]
  - Drug specific antibody present [Unknown]
  - Off label use [Unknown]

NARRATIVE: CASE EVENT DATE: 20250101
